FAERS Safety Report 9241879 (Version 3)
Quarter: 2013Q3

REPORT INFORMATION
  Report Type: Spontaneous
  Country: NL (occurrence: NL)
  Receive Date: 20130419
  Receipt Date: 20130729
  Transmission Date: 20140515
  Serious: Yes (Other)
  Sender: FDA-Public Use
  Company Number: NL-AMGEN-NLDSP2013027252

PATIENT
  Age: 47 Year
  Sex: Male

DRUGS (4)
  1. ENBREL [Suspect]
     Indication: PSORIATIC ARTHROPATHY
     Dosage: 50 MG, 2X/WEEK
     Route: 065
     Dates: start: 20121203
  2. ENBREL [Suspect]
     Dosage: 50 MG, WEEKLY
     Route: 065
  3. MTX                                /00113802/ [Concomitant]
     Dosage: UNK
  4. FOLIC ACID [Concomitant]
     Dosage: UNK

REACTIONS (2)
  - Neuritis [Recovering/Resolving]
  - Multiple sclerosis [Recovering/Resolving]
